FAERS Safety Report 6084123-X (Version None)
Quarter: 2009Q1

REPORT INFORMATION
  Report Type: 
  Country: None (occurrence: None)
  Receive Date: 20090217
  Receipt Date: 20090217
  Transmission Date: 20090719
  Serious: Yes (Other)
  Sender: FDA-Public Use
  Company Number: None

PATIENT
  Sex: Female

DRUGS (1)
  1. COUMADIN [Suspect]
     Indication: FACTOR V DEFICIENCY
     Dosage: 6 MG QDAY PO
     Route: 048

REACTIONS (1)
  - PURPURA [None]
